FAERS Safety Report 7645536-5 (Version None)
Quarter: 2011Q3

REPORT INFORMATION
  Report Type: 
  Country: None (occurrence: None)
  Receive Date: 20110729
  Receipt Date: 20110726
  Transmission Date: 20111222
  Serious: Yes (Hospitalization, Other)
  Sender: FDA-Public Use
  Company Number: US-PFIZER INC-2011038311

PATIENT
  Sex: Female

DRUGS (2)
  1. CHANTIX [Suspect]
     Indication: SMOKING CESSATION THERAPY
     Dosage: QUIT SMOKING
     Dates: start: 20090205, end: 20090218
  2. ETHINYLESTRADIOL/NORGESTIMATE [Concomitant]
     Indication: CONTRACEPTION
     Dosage: UNK
     Dates: start: 20070101

REACTIONS (4)
  - INTENTIONAL OVERDOSE [None]
  - DEPRESSION [None]
  - RESPIRATORY ARREST [None]
  - SUICIDE ATTEMPT [None]
